FAERS Safety Report 15273911 (Version 16)
Quarter: 2019Q1

REPORT INFORMATION
  Report Type: Report from Study
  Country: DE (occurrence: DE)
  Receive Date: 20180814
  Receipt Date: 20190128
  Transmission Date: 20190417
  Serious: Yes (Hospitalization, Other)
  Sender: FDA-Public Use
  Company Number: DE-BRISTOL-MYERS SQUIBB COMPANY-BMS-2018-031316

PATIENT
  Age: 80 Year
  Sex: Male

DRUGS (6)
  1. NIVOLUMAB [Suspect]
     Active Substance: NIVOLUMAB
     Indication: RENAL CELL CARCINOMA
     Dosage: 240 MG, Q2WK
     Route: 042
     Dates: start: 20180314
  2. TELMISARTAN. [Concomitant]
     Active Substance: TELMISARTAN
     Indication: CEREBROVASCULAR DISORDER
     Dosage: 40 MG, UNK
     Route: 065
     Dates: end: 20181016
  3. ASPIRIN. [Concomitant]
     Active Substance: ASPIRIN
     Indication: CARDIOVASCULAR DISORDER
     Dosage: 100 MG, UNK
     Route: 065
     Dates: end: 20181016
  4. TELMISARTAN. [Concomitant]
     Active Substance: TELMISARTAN
     Indication: CARDIOVASCULAR DISORDER
     Route: 065
  5. TAMSULOSIN [Concomitant]
     Active Substance: TAMSULOSIN
     Indication: PRODUCT USED FOR UNKNOWN INDICATION
     Dosage: UNK
     Route: 065
  6. ASPIRIN. [Concomitant]
     Active Substance: ASPIRIN
     Indication: CEREBROVASCULAR DISORDER
     Route: 065

REACTIONS (15)
  - Neutrophil count increased [Recovered/Resolved]
  - Autoimmune thyroiditis [Recovered/Resolved]
  - Subarachnoid haemorrhage [Recovered/Resolved]
  - White blood cell count increased [Not Recovered/Not Resolved]
  - Cough [Recovered/Resolved]
  - Urinary tract infection [Not Recovered/Not Resolved]
  - Epididymitis [Unknown]
  - Dyspnoea [Recovered/Resolved]
  - Hypothyroidism [Recovered/Resolved]
  - Lymphocyte count increased [Recovered/Resolved]
  - Benign prostatic hyperplasia [Not Recovered/Not Resolved]
  - Thrombocytopenia [Not Recovered/Not Resolved]
  - Atrial fibrillation [Recovering/Resolving]
  - Vitamin D deficiency [Recovered/Resolved]
  - Feeling cold [Recovered/Resolved]

NARRATIVE: CASE EVENT DATE: 20180314
